FAERS Safety Report 6254549-X (Version None)
Quarter: 2009Q3

REPORT INFORMATION
  Report Type: 
  Country: None (occurrence: None)
  Receive Date: 20090702
  Receipt Date: 20090623
  Transmission Date: 20100115
  Serious: Yes (Hospitalization)
  Sender: FDA-Public Use
  Company Number: A0407666A

PATIENT
  Age: 78 Year
  Sex: Male

DRUGS (7)
  1. AVANDIA [Suspect]
     Dosage: 4MG PER DAY
     Route: 048
     Dates: start: 20021216, end: 20040410
  2. UNKNOWN BLOOD PRESSURE PILL [Concomitant]
  3. WATER PILL [Concomitant]
  4. METOLAZONE [Concomitant]
  5. IRBESARTAN [Concomitant]
  6. TERAZOSIN HCL [Concomitant]
  7. GLYBURIDE [Concomitant]

REACTIONS (4)
  - FLUID RETENTION [None]
  - GAIT DISTURBANCE [None]
  - PULMONARY OEDEMA [None]
  - WEIGHT INCREASED [None]
